FAERS Safety Report 7350462-5 (Version None)
Quarter: 2011Q1

REPORT INFORMATION
  Report Type: 
  Country: None (occurrence: None)
  Receive Date: 20110314
  Receipt Date: 20110125
  Transmission Date: 20110831
  Serious: No
  Sender: FDA-Public Use
  Company Number: PHHY2010US73258

PATIENT
  Sex: Female

DRUGS (7)
  1. ZOCOR [Concomitant]
     Dosage: 40 MG
     Route: 048
  2. CLARITIN-D [Concomitant]
  3. VITAMINS NOS [Concomitant]
  4. MOBIC [Concomitant]
  5. RECLAST [Suspect]
     Dosage: 5 MG
     Route: 042
     Dates: start: 20100903
  6. PROZAC [Concomitant]
     Dosage: 20 MG
  7. CALCIUM [Concomitant]
     Dosage: 600 MG

REACTIONS (1)
  - TOOTH FRACTURE [None]
